FAERS Safety Report 7309726-3 (Version None)
Quarter: 2011Q1

REPORT INFORMATION
  Report Type: 
  Country: None (occurrence: None)
  Receive Date: 20110224
  Receipt Date: 20110211
  Transmission Date: 20110831
  Serious: No
  Sender: FDA-Public Use
  Company Number: US-BIOGENIDEC-2010BI013048

PATIENT
  Age: 41 Year
  Sex: Female

DRUGS (2)
  1. SOLU-MEDROL [Concomitant]
     Indication: PREMEDICATION
     Route: 042
     Dates: start: 20100514, end: 20100514
  2. TYSABRI [Suspect]
     Indication: MULTIPLE SCLEROSIS
     Route: 042
     Dates: start: 20100317, end: 20100514

REACTIONS (4)
  - HYPERSENSITIVITY [None]
  - URTICARIA [None]
  - INFUSION RELATED REACTION [None]
  - RASH PAPULAR [None]
